FAERS Safety Report 16066330 (Version 3)
Quarter: 2019Q2

REPORT INFORMATION
  Report Type: Spontaneous
  Country: US (occurrence: US)
  Receive Date: 20190313
  Receipt Date: 20190527
  Transmission Date: 20190711
  Serious: Yes (Hospitalization, Other)
  Sender: FDA-Public Use
  Company Number: US-PFIZER INC-2019096524

PATIENT
  Age: 74 Year
  Sex: Male
  Weight: 71.21 kg

DRUGS (1)
  1. LATANOPROST. [Suspect]
     Active Substance: LATANOPROST
     Indication: GLAUCOMA
     Dosage: 2 GTT, 1X/DAY [125MCG/2.5ML-ONE DROP PER EYE BEFORE BEDTIME DAILY]
     Route: 047

REACTIONS (7)
  - Accidental overdose [Unknown]
  - Peripheral artery occlusion [Recovered/Resolved]
  - Superficial injury of eye [Recovered/Resolved]
  - Eye pain [Recovered/Resolved]
  - Arteriosclerosis [Recovered/Resolved]
  - Insomnia [Unknown]
  - Product dropper issue [Unknown]

NARRATIVE: CASE EVENT DATE: 201808
